FAERS Safety Report 4456804-2 (Version None)
Quarter: 2004Q3

REPORT INFORMATION
  Report Type: 
  Country: None (occurrence: None)
  Receive Date: 20040921
  Receipt Date: 20040907
  Transmission Date: 20050211
  Serious: Yes (Hospitalization)
  Sender: FDA-Public Use
  Company Number: 2004-UK-00880UK

PATIENT
  Age: 65 Year
  Sex: Male

DRUGS (9)
  1. PERSANTIN [Suspect]
     Indication: TRANSIENT ISCHAEMIC ATTACK
     Dosage: 200 MG BD (NR)
     Route: 048
     Dates: start: 20020101, end: 20040805
  2. ASPIRIN [Suspect]
     Dosage: 300 MG (NR)
     Route: 048
     Dates: start: 20000101, end: 20040805
  3. BENDROFLUAZIDE (BENDROFLUMETHAZIDE)(NR) [Concomitant]
  4. PERINDOPRIL        (PERINDOPRIL)(NR) [Concomitant]
  5. SIMVASTATIN (NR) [Concomitant]
  6. CORACTEN   (NIFEDIPINE) [Concomitant]
  7. CIMETIDINE [Concomitant]
  8. TEMAZEPAM [Concomitant]
  9. KAPAKE  (PANADINE CO) [Concomitant]

REACTIONS (1)
  - DUODENAL ULCER HAEMORRHAGE [None]
